FAERS Safety Report 5888517-4 (Version None)
Quarter: 2008Q3

REPORT INFORMATION
  Report Type: 
  Country: None (occurrence: None)
  Receive Date: 20080918
  Receipt Date: 20080911
  Transmission Date: 20090109
  Serious: Yes (Hospitalization, Other)
  Sender: FDA-Public Use
  Company Number: US-B.I. PHARMACEUTICALS,INC./RIDGEFIELD-2008-BP-06702BP

PATIENT
  Age: 83 Year
  Sex: Male

DRUGS (4)
  1. FLOMAX [Suspect]
     Indication: BENIGN PROSTATIC HYPERPLASIA
     Dosage: .4MG
     Dates: start: 20030101
  2. FLOMAX [Suspect]
     Indication: DYSURIA
  3. LASIX [Concomitant]
     Dosage: 40MG
  4. WARFARIN SODIUM [Concomitant]

REACTIONS (3)
  - ARTHROPATHY [None]
  - BLADDER CANCER [None]
  - PAIN IN EXTREMITY [None]
